FAERS Safety Report 23246967 (Version 6)
Quarter: 2024Q4

REPORT INFORMATION
  Report Type: Report from Study
  Country: CA (occurrence: CA)
  Receive Date: 20231130
  Receipt Date: 20241223
  Transmission Date: 20250114
  Serious: Yes (Other)
  Sender: PFIZER
  Company Number: CA-Orion Corporation ORION PHARMA-TREX2023-0281

PATIENT
  Age: 27 Year
  Sex: Male

DRUGS (22)
  1. METHOTREXATE SODIUM [Interacting]
     Active Substance: METHOTREXATE SODIUM
     Indication: Psoriasis
     Dosage: UNK
     Route: 065
     Dates: start: 202310
  2. CLOZAPINE [Interacting]
     Active Substance: CLOZAPINE
     Indication: Schizophrenia
     Dosage: 100 MG, 1X/DAY
     Route: 065
     Dates: start: 20231011, end: 20231115
  3. CLOZAPINE [Interacting]
     Active Substance: CLOZAPINE
     Dosage: UNK
     Dates: start: 202311, end: 20231120
  4. CLOZAPINE [Interacting]
     Active Substance: CLOZAPINE
     Dosage: 300 MG, ONCE AT NIGHT, WEEKLY
     Dates: end: 20241021
  5. SUBLOCADE [Concomitant]
     Active Substance: BUPRENORPHINE
     Dosage: STRENGTH: 100/0.5 MILLIGRAM PER MILLILITRE
     Route: 058
     Dates: start: 20241017
  6. SUBLOCADE [Concomitant]
     Active Substance: BUPRENORPHINE
     Dosage: STRENGTH: 300/1.5 MILLIGRAM PER MILLILITRE, 1 DOSE
     Route: 058
     Dates: start: 20241017
  7. MINIMS ATROPINE SULPHATE [Concomitant]
     Dosage: 3 DROPS AT NIGHT
     Dates: start: 20241021
  8. VALISONE [BETAMETHASONE VALERATE] [Concomitant]
     Dosage: SCALP LOTION, APPLY A SMALL AMOUNT UNIT
     Dates: start: 20241010
  9. BETADERM [Concomitant]
     Active Substance: BETAMETHASONE VALERATE
     Dosage: SCALP LOTION, APPLY A SMALL AMOUNT UNIT
     Dates: start: 20241010
  10. VENTOLIN [Concomitant]
     Active Substance: ALBUTEROL SULFATE
     Dosage: INHALER, METERED DOSE INHALER SHAKE WELL, INHALE 2 PUFFS BY MOUTH AS NEEDED
     Dates: start: 20241010
  11. MELATONIN [Concomitant]
     Active Substance: MELATONIN
     Dosage: 2 TABLETS ONCE AT NIGHT
     Route: 048
     Dates: start: 20241009
  12. TYLENOL [Concomitant]
     Active Substance: ACETAMINOPHEN
     Indication: Pain
     Dosage: EVERY 4-6 HOURS AS NEEDED
     Route: 048
     Dates: start: 20241009
  13. DICLOFENAC DIETHYLAMINE [Concomitant]
     Active Substance: DICLOFENAC DIETHYLAMINE
     Indication: Myalgia
     Dosage: APPLY A DIME SIZED AMOUNT THRICE A DAY AS NEEDED
     Dates: start: 20241009
  14. BETAMETHASONE DIPROPIONATE\CALCIPOTRIENE MONOHYDRATE [Concomitant]
     Active Substance: BETAMETHASONE DIPROPIONATE\CALCIPOTRIENE MONOHYDRATE
     Dosage: APPLY ON KNEES AND HANDS TWICE DAILY FOR 3 WEEKS, THEN ONCE DAILY THEREAFTER
     Route: 061
     Dates: start: 20241009
  15. HYDROCORTISONE ACETATE [Concomitant]
     Active Substance: HYDROCORTISONE ACETATE
     Dosage: APPLY TO RASHY AREAS OF FACE AVOIDING EYES ONCE
     Route: 061
     Dates: start: 20241009
  16. POLYETHYLENE GLYCOL 3350 [Concomitant]
     Active Substance: POLYETHYLENE GLYCOL 3350
     Dosage: IN MORNING AND AT NIGHT
     Route: 048
     Dates: start: 20241009
  17. ABILIFY MAINTENA [Concomitant]
     Active Substance: ARIPIPRAZOLE
     Dosage: 400 MG EVERY 4 WEEKS, STRENGTH: 400/2 MILLIGRAM PER MILLILITRE
     Route: 030
     Dates: start: 20241009
  18. CIPRALEX [Concomitant]
     Active Substance: ESCITALOPRAM OXALATE
     Dosage: ONCE IN MORNING
     Route: 048
     Dates: start: 20241009
  19. ZUCLOPENTHIXOL DECANOATE [Concomitant]
     Active Substance: ZUCLOPENTHIXOL DECANOATE
     Indication: Agitation
     Dosage: 10-20 MG, AS NEEDED
     Route: 048
     Dates: start: 20241009
  20. ZUCLOPENTHIXOL DECANOATE [Concomitant]
     Active Substance: ZUCLOPENTHIXOL DECANOATE
     Indication: Insomnia
  21. LITHIUM CARBONATE [Concomitant]
     Active Substance: LITHIUM CARBONATE
     Dosage: FOR 2 WEEKS AND THEN STOP
     Route: 048
     Dates: start: 20241021, end: 2024
  22. SENOKOT [Concomitant]
     Active Substance: SENNOSIDES
     Dosage: AT NIGHT
     Route: 048

REACTIONS (10)
  - Drug interaction [Unknown]
  - Myelosuppression [Unknown]
  - Neutrophil count decreased [Unknown]
  - Drug ineffective [Unknown]
  - Therapeutic response decreased [Unknown]
  - Neutropenia [Unknown]
  - Agranulocytosis [Unknown]
  - Drooling [Unknown]
  - Weight increased [Unknown]
  - Sedation [Unknown]

NARRATIVE: CASE EVENT DATE: 20230101
